FAERS Safety Report 18169472 (Version 1)
Quarter: 2020Q3

REPORT INFORMATION
  Report Type: Spontaneous
  Country: JP (occurrence: JP)
  Receive Date: 20200819
  Receipt Date: 20200819
  Transmission Date: 20201103
  Serious: Yes (Other)
  Sender: FDA-Public Use
  Company Number: JP-ALVOGEN-2020-ALVOGEN-113856

PATIENT
  Age: 30 Year
  Sex: Female

DRUGS (4)
  1. PRAZOSIN. [Interacting]
     Active Substance: PRAZOSIN
     Indication: NIGHTMARE
     Dosage: 7 MG QHS
  2. ESCITALOPRAM [Concomitant]
     Active Substance: ESCITALOPRAM OXALATE
     Indication: PRODUCT USED FOR UNKNOWN INDICATION
  3. METHOCARBAMOL. [Interacting]
     Active Substance: METHOCARBAMOL
     Indication: BACK PAIN
  4. ATENOLOL. [Suspect]
     Active Substance: ATENOLOL
     Indication: PRODUCT USED FOR UNKNOWN INDICATION
     Dosage: 50 MG QAM

REACTIONS (3)
  - Blood pressure decreased [Unknown]
  - Drug interaction [Unknown]
  - Fall [Unknown]
